FAERS Safety Report 20687382 (Version 1)
Quarter: 2022Q2

REPORT INFORMATION
  Report Type: Spontaneous
  Country: CZ (occurrence: CZ)
  Receive Date: 20220408
  Receipt Date: 20220408
  Transmission Date: 20220721
  Serious: Yes (Other)
  Sender: FDA-Public Use
  Company Number: CZ-SUN PHARMACEUTICAL INDUSTRIES LTD-2022R1-331949

PATIENT
  Age: 31 Year
  Sex: Female

DRUGS (4)
  1. FLUOXETINE [Interacting]
     Active Substance: FLUOXETINE HYDROCHLORIDE
     Indication: Anxiety
     Dosage: UNK (20 MG TBL. 1-0-0)
     Route: 065
     Dates: start: 20210410
  2. WARFARIN [Interacting]
     Active Substance: WARFARIN
     Indication: Pulmonary embolism
     Dosage: UNK (10 MG TBL. 1-0-0)
     Route: 065
     Dates: start: 20210408, end: 20210417
  3. CLONAZEPAM [Concomitant]
     Active Substance: CLONAZEPAM
     Indication: Product used for unknown indication
     Dosage: UNK (0,5 MG TBL. 1/2-1/2-1/2)
     Route: 065
  4. PANTOPRAZOLE [Concomitant]
     Active Substance: PANTOPRAZOLE
     Indication: Product used for unknown indication
     Dosage: UNK (40 MG TBL. 1-0-0)
     Route: 065
     Dates: start: 20210408

REACTIONS (2)
  - Drug interaction [Unknown]
  - International normalised ratio increased [Unknown]
